FAERS Safety Report 4289846-0 (Version None)
Quarter: 2004Q1

REPORT INFORMATION
  Report Type: 
  Country: None (occurrence: None)
  Receive Date: 20040209
  Receipt Date: 20000905
  Transmission Date: 20041129
  Serious: No
  Sender: FDA-Public Use
  Company Number: US-GLAXOSMITHKLINE-A0336442A

PATIENT
  Age: 38 Year
  Sex: Female
  Weight: 113.38 kg

DRUGS (8)
  1. PAXIL [Suspect]
     Route: 048
     Dates: start: 19930401
  2. XANAX [Concomitant]
  3. ALDACTONE [Concomitant]
  4. GLUCOPHAGE [Concomitant]
     Route: 065
  5. SYNTHROID [Concomitant]
     Route: 065
  6. COZAAR [Concomitant]
     Route: 065
  7. ALEVE [Concomitant]
     Route: 065
  8. ASTHMA MEDICATION [Concomitant]

REACTIONS (15)
  - ABNORMAL BEHAVIOUR [None]
  - ANXIETY [None]
  - DISTURBANCE IN ATTENTION [None]
  - DIZZINESS [None]
  - DRUG WITHDRAWAL SYNDROME [None]
  - DYSPNOEA [None]
  - HALLUCINATION, AUDITORY [None]
  - NAUSEA [None]
  - PUPILLARY DISORDER [None]
  - SENSATION OF FOREIGN BODY [None]
  - SENSORY DISTURBANCE [None]
  - TEMPERATURE INTOLERANCE [None]
  - TENSION [None]
  - VERTIGO [None]
  - VISUAL DISTURBANCE [None]
